FAERS Safety Report 6901843-2 (Version None)
Quarter: 2010Q3

REPORT INFORMATION
  Report Type: 
  Country: None (occurrence: None)
  Receive Date: 20100802
  Receipt Date: 20100802
  Transmission Date: 20110219
  Serious: Yes (Life-Threatening, Hospitalization)
  Sender: FDA-Public Use
  Company Number: None

PATIENT
  Age: 29 Year
  Sex: Female
  Weight: 77.1115 kg

DRUGS (1)
  1. ETODOLAC [Suspect]

REACTIONS (4)
  - COLITIS [None]
  - HEPATIC FAILURE [None]
  - NEUTROPENIA [None]
  - RENAL FAILURE [None]
